FAERS Safety Report 12497262 (Version 1)
Quarter: 2016Q2

REPORT INFORMATION
  Report Type: Report from Study
  Country: CN (occurrence: CN)
  Receive Date: 20160624
  Receipt Date: 20160624
  Transmission Date: 20160815
  Serious: Yes (Life-Threatening, Other)
  Sender: FDA-Public Use
  Company Number: CN-ASTRAZENECA-2016SE57265

PATIENT
  Age: 55 Year
  Sex: Male

DRUGS (1)
  1. BYETTA [Suspect]
     Active Substance: EXENATIDE
     Indication: DIABETES MELLITUS
     Route: 058
     Dates: start: 201604, end: 20160516

REACTIONS (7)
  - Dyspnoea [Unknown]
  - Cardiac disorder [Unknown]
  - Acne [Recovering/Resolving]
  - Coma [Unknown]
  - Pulmonary function test abnormal [Unknown]
  - Hyperhidrosis [Unknown]
  - Hypersensitivity [Recovered/Resolved]
